FAERS Safety Report 14232249 (Version 2)
Quarter: 2017Q4

REPORT INFORMATION
  Report Type: Spontaneous
  Country: DE (occurrence: DE)
  Receive Date: 20171128
  Receipt Date: 20171212
  Transmission Date: 20180321
  Serious: No
  Sender: FDA-Public Use
  Company Number: DE-ABBVIE-17P-062-2175373-00

PATIENT
  Sex: Female

DRUGS (1)
  1. VALPROAT CHRONO WINTHROP [Suspect]
     Active Substance: VALPROATE SODIUM
     Indication: EXPOSURE VIA BODY FLUID
     Route: 064

REACTIONS (2)
  - Exposure during pregnancy [Unknown]
  - Paternal drugs affecting foetus [Unknown]
